FAERS Safety Report 7338380-X (Version None)
Quarter: 2011Q1

REPORT INFORMATION
  Report Type: 
  Country: None (occurrence: None)
  Receive Date: 20110308
  Receipt Date: 20110209
  Transmission Date: 20110831
  Serious: No
  Sender: FDA-Public Use
  Company Number: US-B.I. PHARMACEUTICALS,INC./RIDGEFIELD-2010-BP-13355BP

PATIENT
  Sex: Female

DRUGS (11)
  1. VITAMIN D [Concomitant]
  2. PRADAXA [Suspect]
     Indication: DRUG THERAPY CHANGED
  3. DICYCLOMINE [Concomitant]
     Indication: ABDOMINAL PAIN
  4. SIMVASTATIN [Concomitant]
  5. PRADAXA [Suspect]
     Indication: CEREBROVASCULAR ACCIDENT
  6. PRADAXA [Suspect]
     Indication: PULMONARY EMBOLISM
     Dosage: 300 MG
     Route: 048
     Dates: start: 20101116
  7. VIT B [Concomitant]
     Indication: VITAMIN B COMPLEX DEFICIENCY
  8. DILTIAZEM [Concomitant]
  9. 3 HEART MEDICATIONS [Concomitant]
  10. DIGOXIN [Concomitant]
  11. METOPROLOL [Concomitant]

REACTIONS (1)
  - MUSCULOSKELETAL CHEST PAIN [None]
